FAERS Safety Report 10183283 (Version 1)
Quarter: 2014Q2

REPORT INFORMATION
  Report Type: Spontaneous
  Country: DE (occurrence: DE)
  Receive Date: 20140520
  Receipt Date: 20140520
  Transmission Date: 20141212
  Serious: Yes (Hospitalization)
  Sender: FDA-Public Use
  Company Number: DE-JNJFOC-20140510116

PATIENT
  Age: 80 Year
  Sex: Female
  Weight: 70 kg

DRUGS (11)
  1. XARELTO [Suspect]
     Indication: CEREBROVASCULAR ACCIDENT PROPHYLAXIS
     Route: 048
  2. XARELTO [Suspect]
     Indication: CEREBROVASCULAR ACCIDENT PROPHYLAXIS
     Route: 048
     Dates: start: 20131218
  3. XARELTO [Suspect]
     Indication: ATRIAL FIBRILLATION
     Route: 048
  4. XARELTO [Suspect]
     Indication: ATRIAL FIBRILLATION
     Route: 048
     Dates: start: 20131218
  5. BISOPROLOL [Concomitant]
     Route: 048
  6. SPIRONOLACTON [Concomitant]
     Route: 048
  7. ACLIDINIUM [Concomitant]
     Route: 055
  8. TORASEMID [Concomitant]
     Route: 048
  9. ISOSORBIDE DINITRATE [Concomitant]
     Route: 048
  10. SYMBICORT [Concomitant]
     Route: 055
  11. PANTOPRAZOLE [Concomitant]
     Route: 065

REACTIONS (2)
  - Cerebrovascular accident [Recovered/Resolved]
  - Drug ineffective [Unknown]
